FAERS Safety Report 8763416 (Version 4)
Quarter: 2012Q4

REPORT INFORMATION
  Report Type: 
  Country: SE (occurrence: SE)
  Receive Date: 20120830
  Receipt Date: 20121221
  Transmission Date: 20130627
  Serious: Yes (Other)
  Sender: FDA-Public Use
  Company Number: SE-BAYER-2012-081928

PATIENT
  Age: 36 Year
  Sex: Female

DRUGS (4)
  1. MIRENA [Suspect]
     Indication: CONTRACEPTION
     Dosage: 20 mcg/24hr, CONT
     Route: 015
     Dates: start: 2010, end: 20120816
  2. NASONEX [Concomitant]
     Indication: COMMON COLD
  3. TRIONETTA [Suspect]
     Indication: ORAL CONTRACEPTION
     Dosage: UNK
     Route: 048
     Dates: end: 1998
  4. COPPER [Suspect]
     Route: 015

REACTIONS (20)
  - Paraesthesia [Recovering/Resolving]
  - Hypoaesthesia [Recovering/Resolving]
  - Speech disorder [Recovering/Resolving]
  - Fatigue [Recovering/Resolving]
  - Dysstasia [Recovering/Resolving]
  - Panic attack [Recovering/Resolving]
  - Tremor [Recovering/Resolving]
  - Tic [Recovering/Resolving]
  - Hypertension [Recovering/Resolving]
  - Musculoskeletal stiffness [Recovering/Resolving]
  - Feeling abnormal [Recovering/Resolving]
  - Photopsia [Recovering/Resolving]
  - Tenderness [Recovering/Resolving]
  - Abnormal dreams [Recovering/Resolving]
  - Swelling [Recovering/Resolving]
  - Emotional distress [None]
  - Premenstrual syndrome [Recovered/Resolved]
  - Menorrhagia [Recovered/Resolved]
  - Muscular weakness [None]
  - Neuropathy peripheral [None]
